FAERS Safety Report 17741373 (Version 1)
Quarter: 2020Q2

REPORT INFORMATION
  Report Type: Spontaneous
  Country: BE (occurrence: BE)
  Receive Date: 20200504
  Receipt Date: 20200504
  Transmission Date: 20200714
  Serious: Yes (Hospitalization)
  Sender: FDA-Public Use
  Company Number: NVSC2020BE119123

PATIENT
  Age: 40 Year
  Sex: Male

DRUGS (1)
  1. METHYLPREDNISOLONE. [Suspect]
     Active Substance: METHYLPREDNISOLONE
     Indication: PRODUCT USED FOR UNKNOWN INDICATION
     Dosage: 35 MG, UNK
     Route: 065

REACTIONS (4)
  - Hypotonia [Recovered/Resolved]
  - Bradyarrhythmia [Recovered/Resolved]
  - Familial periodic paralysis [Recovered/Resolved]
  - Hyporeflexia [Recovered/Resolved]
